FAERS Safety Report 11558373 (Version 1)
Quarter: 2015Q3

REPORT INFORMATION
  Report Type: Spontaneous
  Country: US (occurrence: None)
  Receive Date: 20150925
  Receipt Date: 20150925
  Transmission Date: 20151125
  Serious: Yes (Hospitalization)
  Sender: FDA-Public Use
  Company Number: None

PATIENT
  Age: 67 Year
  Sex: Male
  Weight: 77.57 kg

DRUGS (8)
  1. CARDIZEM [Suspect]
     Active Substance: DILTIAZEM HYDROCHLORIDE
     Indication: ATRIAL FIBRILLATION
     Dosage: 100MG / 100ML TITRATE INTO A VEIN
     Route: 041
     Dates: start: 20141024, end: 20141025
  2. MAGNESIUM ASPARTATE [Concomitant]
     Active Substance: MAGNESIUM ASPARTATE
  3. CARDIZEM [Suspect]
     Active Substance: DILTIAZEM HYDROCHLORIDE
     Indication: CARDIAC FAILURE
     Dosage: 100MG / 100ML TITRATE INTO A VEIN
     Route: 041
     Dates: start: 20141024, end: 20141025
  4. DIGOXIN. [Concomitant]
     Active Substance: DIGOXIN
  5. VITAMIN C [Concomitant]
     Active Substance: ASCORBIC ACID
  6. LISINOPRIL. [Concomitant]
     Active Substance: LISINOPRIL
  7. METOPROLOL [Concomitant]
     Active Substance: METOPROLOL
  8. VITAMIN B12 [Concomitant]
     Active Substance: CYANOCOBALAMIN

REACTIONS (7)
  - Cerebrovascular accident [None]
  - Medication error [None]
  - Heart rate increased [None]
  - Intracardiac thrombus [None]
  - Product container issue [None]
  - Product reconstitution issue [None]
  - Wrong technique in product usage process [None]

NARRATIVE: CASE EVENT DATE: 20141025
